FAERS Safety Report 6486369-5 (Version None)
Quarter: 2009Q4

REPORT INFORMATION
  Report Type: 
  Country: None (occurrence: None)
  Receive Date: 20091210
  Receipt Date: 20091130
  Transmission Date: 20100525
  Serious: Yes (Hospitalization)
  Sender: FDA-Public Use
  Company Number: US-BIOGENIDEC-2008BI003216

PATIENT
  Age: 53 Year
  Sex: Female
  Weight: 56 kg

DRUGS (9)
  1. TYSABRI [Suspect]
     Indication: MULTIPLE SCLEROSIS
     Route: 042
     Dates: start: 20071031, end: 20080201
  2. AMANTADINE [Concomitant]
     Indication: DRUG USE FOR UNKNOWN INDICATION
  3. SOTALOL HCL [Concomitant]
     Indication: ATRIAL FIBRILLATION
  4. ASPIRIN [Concomitant]
     Indication: DRUG USE FOR UNKNOWN INDICATION
  5. FOSAMAX [Concomitant]
     Indication: DRUG USE FOR UNKNOWN INDICATION
  6. DIAZEPAM [Concomitant]
     Indication: DRUG USE FOR UNKNOWN INDICATION
  7. CLARITIN [Concomitant]
     Indication: DRUG USE FOR UNKNOWN INDICATION
  8. LORTAB [Concomitant]
     Indication: DRUG USE FOR UNKNOWN INDICATION
  9. AMBIEN [Concomitant]
     Indication: DRUG USE FOR UNKNOWN INDICATION

REACTIONS (11)
  - ASTHENIA [None]
  - COGNITIVE DISORDER [None]
  - DIVERTICULAR PERFORATION [None]
  - DIVERTICULITIS [None]
  - FEMALE GENITAL TRACT FISTULA [None]
  - INTESTINAL OBSTRUCTION [None]
  - INTESTINAL PERFORATION [None]
  - MULTIPLE SCLEROSIS RELAPSE [None]
  - PELVIC INFLAMMATORY DISEASE [None]
  - PERIDIVERTICULAR ABSCESS [None]
  - POST PROCEDURAL COMPLICATION [None]
